FAERS Safety Report 9087343 (Version 1)
Quarter: 2013Q1

REPORT INFORMATION
  Report Type: Report from Study
  Country: US (occurrence: US)
  Receive Date: 20130130
  Receipt Date: 20130130
  Transmission Date: 20140127
  Serious: No
  Sender: FDA-Public Use
  Company Number: US-ABBOTT-12P-163-0986012-00

PATIENT
  Age: 20 Year
  Sex: Female

DRUGS (8)
  1. HUMIRA [Suspect]
     Indication: CROHN^S DISEASE
     Dosage: 160MG LOADING DOSE
     Route: 058
     Dates: start: 20120919, end: 20120919
  2. HUMIRA [Suspect]
     Route: 058
  3. ASACOL [Concomitant]
     Indication: PRODUCT USED FOR UNKNOWN INDICATION
     Dosage: 1200MG DAILY
  4. LAMICTAL [Concomitant]
     Indication: BIPOLAR DISORDER
     Dosage: 100MG DAILY
  5. BUSPAR [Concomitant]
     Indication: ANXIETY
  6. UNKNOWN BIRTH CONTROL [Concomitant]
     Indication: CONTRACEPTION
  7. IRON [Concomitant]
     Indication: MINERAL SUPPLEMENTATION
  8. VITAMIN [Concomitant]
     Indication: VITAMIN SUPPLEMENTATION

REACTIONS (1)
  - Injection site pain [Recovered/Resolved]
